FAERS Safety Report 9554942 (Version 1)
Quarter: 2013Q3

REPORT INFORMATION
  Report Type: Spontaneous
  Country: NL (occurrence: NL)
  Receive Date: 20130926
  Receipt Date: 20130926
  Transmission Date: 20140515
  Serious: Yes (Hospitalization)
  Sender: FDA-Public Use
  Company Number: NL-ROCHE-1279696

PATIENT
  Sex: Male

DRUGS (1)
  1. VEMURAFENIB [Suspect]
     Indication: PRODUCT USED FOR UNKNOWN INDICATION
     Route: 048
     Dates: start: 201308

REACTIONS (3)
  - Decreased appetite [Recovering/Resolving]
  - Hypersomnia [Recovering/Resolving]
  - Speech disorder [Recovering/Resolving]
